FAERS Safety Report 15038125 (Version 1)
Quarter: 2018Q2

REPORT INFORMATION
  Report Type: Spontaneous
  Country: HU (occurrence: HU)
  Receive Date: 20180620
  Receipt Date: 20180620
  Transmission Date: 20180711
  Serious: Yes (Other)
  Sender: FDA-Public Use
  Company Number: HU-TERSERA THERAPEUTICS, LLC-2049726

PATIENT
  Age: 42 Year
  Sex: Female

DRUGS (9)
  1. ZOLADEX [Suspect]
     Active Substance: GOSERELIN ACETATE
     Indication: PRODUCT USED FOR UNKNOWN INDICATION
     Route: 058
  2. TAMOXIFENE G GAM [Suspect]
     Active Substance: TAMOXIFEN
     Route: 048
     Dates: start: 201106, end: 201505
  3. FULVESTRANT. [Suspect]
     Active Substance: FULVESTRANT
     Route: 030
     Dates: start: 20070210, end: 201203
  4. IBRANCE [Suspect]
     Active Substance: PALBOCICLIB
     Route: 048
  5. LEUPRORELIN [Suspect]
     Active Substance: LEUPROLIDE ACETATE
     Route: 065
     Dates: start: 20100613, end: 201306
  6. TRAMADOL. [Concomitant]
     Active Substance: TRAMADOL
     Route: 065
  7. LETROZOLE. [Suspect]
     Active Substance: LETROZOLE
     Route: 065
  8. ZOLEDRONIC ACID [Suspect]
     Active Substance: ZOLEDRONIC ACID
     Route: 065
  9. LORNOXICAM [Concomitant]
     Active Substance: LORNOXICAM
     Route: 065

REACTIONS (7)
  - Pain [Not Recovered/Not Resolved]
  - Metastases to bone [Not Recovered/Not Resolved]
  - Limb discomfort [Unknown]
  - Bone lesion [Not Recovered/Not Resolved]
  - Metastases to spinal cord [Not Recovered/Not Resolved]
  - Hypoaesthesia [Unknown]
  - Blood alkaline phosphatase increased [Recovering/Resolving]

NARRATIVE: CASE EVENT DATE: 2016
